FAERS Safety Report 4598313-6 (Version None)
Quarter: 2005Q1

REPORT INFORMATION
  Report Type: 
  Country: None (occurrence: None)
  Receive Date: 20050302
  Receipt Date: 20050302
  Transmission Date: 20050727
  Serious: Yes (Hospitalization, Other)
  Sender: FDA-Public Use
  Company Number: None

PATIENT
  Age: 71 Year
  Sex: Female
  Weight: 81.6475 kg

DRUGS (6)
  1. DR SCHOLL'S CALLUS REMOVER TOPICALS [Suspect]
     Indication: HYPERKERATOSIS
     Dosage: TOP-DERM
     Route: 061
  2. DR. SCHOLL'S CLEAR AWAY ONE-STEP WART REMOVER DISC [Suspect]
     Indication: HYPERKERATOSIS
     Dosage: TOP-DERM
     Route: 061
  3. FUROSEMIDE [Concomitant]
  4. SYNTHROID [Concomitant]
  5. BENICAR [Concomitant]
  6. POTASSIUM CHLORIDE [Concomitant]

REACTIONS (5)
  - APPLICATION SITE PAIN [None]
  - APPLICATION SITE REACTION [None]
  - APPLICATION SITE SWELLING [None]
  - BLOODY DISCHARGE [None]
  - LOCALISED INFECTION [None]
